FAERS Safety Report 8189321-7 (Version None)
Quarter: 2012Q1

REPORT INFORMATION
  Report Type: 
  Country: None (occurrence: None)
  Receive Date: 20120302
  Receipt Date: 20120215
  Transmission Date: 20120608
  Serious: Yes (Hospitalization)
  Sender: FDA-Public Use
  Company Number: 2012AP000420

PATIENT
  Age: 81 Year
  Sex: Female

DRUGS (6)
  1. METFORMIN HCL [Suspect]
     Indication: TYPE 2 DIABETES MELLITUS
     Dosage: 850 MG; Q8H
  2. TORSEMIDE [Concomitant]
  3. CARVEDILOL [Concomitant]
  4. TELMISARTAN [Concomitant]
  5. ATORVASTATIN [Concomitant]
  6. OMEPRAZOLE [Concomitant]

REACTIONS (26)
  - LACTIC ACIDOSIS [None]
  - BODY TEMPERATURE DECREASED [None]
  - HAEMOGLOBIN DECREASED [None]
  - URINE KETONE BODY PRESENT [None]
  - HYPERTENSIVE NEPHROPATHY [None]
  - BUNDLE BRANCH BLOCK LEFT [None]
  - FLUID OVERLOAD [None]
  - HAEMODYNAMIC INSTABILITY [None]
  - COGNITIVE DISORDER [None]
  - VOMITING [None]
  - BRADYPHRENIA [None]
  - DISTURBANCE IN ATTENTION [None]
  - BLOOD SODIUM DECREASED [None]
  - PROTEINURIA [None]
  - CARDIOMEGALY [None]
  - DIARRHOEA HAEMORRHAGIC [None]
  - MUCOUS STOOLS [None]
  - PCO2 DECREASED [None]
  - CALCIUM IONISED DECREASED [None]
  - DISORIENTATION [None]
  - RALES [None]
  - RENAL TUBULAR NECROSIS [None]
  - DRUG LEVEL INCREASED [None]
  - DIABETIC NEPHROPATHY [None]
  - RENAL FAILURE CHRONIC [None]
  - HAEMODIALYSIS [None]
